FAERS Safety Report 9731508 (Version 2)
Quarter: 2013Q4

REPORT INFORMATION
  Report Type: Spontaneous
  Country: GB (occurrence: GB)
  Receive Date: 20131203
  Receipt Date: 20131203
  Transmission Date: 20140711
  Serious: Yes (Disabling, Other)
  Sender: FDA-Public Use
  Company Number: GB-WATSON-2013-22146

PATIENT
  Age: 36 Year
  Sex: Female
  Weight: 60 kg

DRUGS (4)
  1. TAMOXIFEN (UNKNOWN) [Suspect]
     Indication: BREAST CANCER
     Dosage: 20 MG, UNKNOWN
     Route: 048
     Dates: start: 201302
  2. ESCITALOPRAM [Concomitant]
     Indication: PRODUCT USED FOR UNKNOWN INDICATION
     Dosage: 20 MG, UNKNOWN
     Route: 065
     Dates: start: 201304
  3. VITAMIN D                          /00107901/ [Concomitant]
     Indication: PRODUCT USED FOR UNKNOWN INDICATION
     Dosage: 1000 MG, DAILY
     Route: 065
     Dates: start: 201303
  4. EVENING PRIMROSE OIL [Concomitant]
     Indication: PRODUCT USED FOR UNKNOWN INDICATION
     Dosage: UNK
     Route: 065

REACTIONS (7)
  - Pain in extremity [Not Recovered/Not Resolved]
  - Gait disturbance [Unknown]
  - Activities of daily living impaired [Unknown]
  - Myalgia [Unknown]
  - Bone pain [Unknown]
  - Arthralgia [Unknown]
  - Fibromyalgia [Unknown]
